FAERS Safety Report 8880417 (Version 2)
Quarter: 2012Q4

REPORT INFORMATION
  Report Type: 
  Country: AU (occurrence: AU)
  Receive Date: 20121101
  Receipt Date: 20121109
  Transmission Date: 20130627
  Serious: Yes (Other)
  Sender: FDA-Public Use
  Company Number: PHHY2012AU098831

PATIENT
  Age: 55 Year
  Sex: Female

DRUGS (3)
  1. ACLASTA [Suspect]
     Indication: OSTEOPOROSIS
     Dosage: 5 mg, UNK
     Route: 042
     Dates: start: 20111010
  2. CALTRATE [Concomitant]
     Dosage: 1 DF, daily
     Route: 048
  3. OSTELIN [Concomitant]
     Dosage: 1000 DF, daily
     Route: 048

REACTIONS (1)
  - Bone density decreased [Unknown]
